FAERS Safety Report 9457381 (Version 1)
Quarter: 2013Q3

REPORT INFORMATION
  Report Type: Report from Study
  Country: KR (occurrence: KR)
  Receive Date: 20130814
  Receipt Date: 20130814
  Transmission Date: 20140515
  Serious: Yes (Death)
  Sender: FDA-Public Use
  Company Number: KR-PFIZER INC-2012270324

PATIENT
  Age: 38 Year
  Sex: Male
  Weight: 91.9 kg

DRUGS (4)
  1. CAMPTO [Suspect]
     Indication: NON-SMALL CELL LUNG CANCER
     Dosage: 120 MG/M2, CYCLIC: DAY 1 EVERY 3 WEEKS
     Route: 042
     Dates: start: 20120816, end: 20121018
  2. CISPLATIN [Suspect]
     Indication: NON-SMALL CELL LUNG CANCER
     Dosage: 60 MG/M2, CYCLIC: DAY 1 EVERY 3 WEEKS
     Route: 042
     Dates: start: 20120816, end: 20121018
  3. GIMERACIL\OTERACIL POTASSIUM\TEGAFUR [Suspect]
     Indication: NON-SMALL CELL LUNG CANCER
     Dosage: 80 MG/M2, CYCLIC: DAY1-DAY14, EVERY 3 WEEKS
     Route: 048
     Dates: start: 20120816, end: 20121026
  4. SK INFLUENZA 10 VACCINE [Concomitant]
     Indication: PROPHYLAXIS
     Dosage: UNK
     Route: 030
     Dates: start: 20121018, end: 20121018

REACTIONS (1)
  - Cerebrovascular accident [Fatal]
